FAERS Safety Report 10420966 (Version 1)
Quarter: 2014Q3

REPORT INFORMATION
  Report Type: Spontaneous
  Country: US (occurrence: None)
  Receive Date: 20140714
  Receipt Date: 20140714
  Transmission Date: 20150326
  Serious: Yes (Hospitalization)
  Sender: FDA-Public Use
  Company Number: 2014US003117

PATIENT
  Age: 72 Year
  Sex: Male

DRUGS (6)
  1. LEVOFLOXACIN [Concomitant]
     Active Substance: LEVOFLOXACIN
  2. OMEPRAZOLE. [Concomitant]
     Active Substance: OMEPRAZOLE
  3. IRON [Concomitant]
     Active Substance: IRON
  4. ICLUSIG [Suspect]
     Active Substance: PONATINIB
     Indication: CHRONIC MYELOID LEUKAEMIA
     Route: 048
     Dates: start: 20140206, end: 20140319
  5. TYLENOL [Concomitant]
     Active Substance: ACETAMINOPHEN
  6. METHADONE [Concomitant]
     Active Substance: METHADONE HYDROCHLORIDE

REACTIONS (1)
  - Pneumonia [None]
